FAERS Safety Report 5097865-X (Version None)
Quarter: 2006Q3

REPORT INFORMATION
  Report Type: 
  Country: None (occurrence: None)
  Receive Date: 20060905
  Receipt Date: 20060905
  Transmission Date: 20061208
  Serious: Yes (Hospitalization)
  Sender: FDA-Public Use
  Company Number: None

PATIENT
  Age: 75 Year
  Sex: Male

DRUGS (11)
  1. CISPLATIN [Suspect]
     Indication: HEPATIC NEOPLASM MALIGNANT
     Dosage: 180 MG ONE ROUND IV
     Route: 042
     Dates: start: 20060619, end: 20060619
  2. CISPLATIN [Suspect]
     Indication: SQUAMOUS CELL CARCINOMA
     Dosage: 180 MG ONE ROUND IV
     Route: 042
     Dates: start: 20060619, end: 20060619
  3. CLONAZEPAM [Concomitant]
  4. DEXAMETHASONE TAB [Concomitant]
  5. DEXAMETHASONE SODIUM PHOSPHATE [Concomitant]
  6. FERROUS SULFATE TAB [Concomitant]
  7. METRONIDAZOLE [Concomitant]
  8. MORPHINE SO4 [Concomitant]
  9. MOXIFLOXACIN HCL [Concomitant]
  10. NADOLOL [Concomitant]
  11. OMEPRAZLE [Concomitant]

REACTIONS (7)
  - DEHYDRATION [None]
  - GASTROINTESTINAL HAEMORRHAGE [None]
  - HYPOVOLAEMIA [None]
  - ORAL INTAKE REDUCED [None]
  - PANCYTOPENIA [None]
  - RENAL FAILURE ACUTE [None]
  - THERAPEUTIC AGENT TOXICITY [None]
